FAERS Safety Report 7016821-5 (Version None)
Quarter: 2010Q3

REPORT INFORMATION
  Report Type: 
  Country: None (occurrence: None)
  Receive Date: 20100927
  Receipt Date: 20100914
  Transmission Date: 20110219
  Serious: Yes (Other)
  Sender: FDA-Public Use
  Company Number: GB-WATSON-2010-12689

PATIENT
  Age: 37 Year
  Sex: Female

DRUGS (3)
  1. CITALOPRAM HYDROBROMIDE [Suspect]
     Indication: DEPRESSION
     Dosage: 20 MG, UNKNOWN
     Route: 048
     Dates: start: 20100618, end: 20100902
  2. CITALOPRAM HYDROBROMIDE [Suspect]
     Dosage: 10 MG, UNKNOWN
     Route: 048
  3. LEVOTHYROXINE SODIUM [Suspect]
     Indication: HYPOTHYROIDISM
     Dosage: 175 MCG, UNKNOWN
     Route: 048

REACTIONS (2)
  - DRUG INTERACTION [None]
  - THYROXINE FREE INCREASED [None]
